FAERS Safety Report 24861104 (Version 1)
Quarter: 2025Q1

REPORT INFORMATION
  Report Type: Spontaneous
  Country: US (occurrence: US)
  Receive Date: 20250120
  Receipt Date: 20250120
  Transmission Date: 20250409
  Serious: Yes (Death, Other)
  Sender: SPECGX
  Company Number: US-SPECGX-T202500316

PATIENT
  Age: 34 Year
  Sex: Female

DRUGS (2)
  1. METHADONE [Suspect]
     Active Substance: METHADONE HYDROCHLORIDE
     Indication: Product used for unknown indication
     Route: 065
  2. FENTANYL [Suspect]
     Active Substance: FENTANYL
     Indication: Product used for unknown indication
     Route: 065

REACTIONS (9)
  - Toxicity to various agents [Fatal]
  - Acute lung injury [Unknown]
  - Delirium [Unknown]
  - Acute respiratory distress syndrome [Unknown]
  - Hallucination [Unknown]
  - Electrocardiogram QT prolonged [Unknown]
  - Blister [Unknown]
  - Leukocytosis [Unknown]
  - Tachycardia [Unknown]
